FAERS Safety Report 9306160 (Version 2)
Quarter: 2014Q1

REPORT INFORMATION
  Report Type: Spontaneous
  Country: US (occurrence: US)
  Receive Date: 20130523
  Receipt Date: 20140115
  Transmission Date: 20141002
  Serious: No
  Sender: FDA-Public Use
  Company Number: US-PFIZER INC-2013155647

PATIENT
  Age: 83 Year
  Sex: Female
  Weight: 63.04 kg

DRUGS (14)
  1. ADVIL PM [Suspect]
     Indication: POOR QUALITY SLEEP
     Dosage: IBUPROFEN 200MG/ DIPHENHYDRAMINE 25MG, DAILY
     Route: 048
     Dates: end: 201305
  2. ADVIL PM [Suspect]
     Indication: PAIN
  3. ADVIL PM [Suspect]
     Indication: INSOMNIA
  4. AMLODIPINE [Concomitant]
     Indication: HYPERTENSION
     Dosage: 5 MG, DAILY
  5. AMLODIPINE [Concomitant]
     Indication: BLOOD PRESSURE ABNORMAL
  6. LOSARTAN/HCTZ [Concomitant]
     Indication: HYPERTENSION
     Dosage: LOSARTAN 100MG/ HYDROCHLOROTHIAZIDE 25MG, DAILY
     Route: 048
  7. LOSARTAN/HCTZ [Concomitant]
     Indication: BLOOD PRESSURE ABNORMAL
  8. PRAVASTATIN [Concomitant]
     Indication: BLOOD CHOLESTEROL INCREASED
     Dosage: 40 MG, DAILY
  9. PRAVASTATIN [Concomitant]
     Indication: BLOOD CHOLESTEROL ABNORMAL
  10. METFORMIN [Concomitant]
     Indication: DIABETES MELLITUS
     Dosage: 500 MG, TWO TIMES A DAY
  11. FISH OIL [Concomitant]
     Indication: SUPPLEMENTATION THERAPY
     Dosage: 1000 MG, DAILY
  12. SHOPRITE MULTIVITAMIN FOR WOMEN 50+ [Concomitant]
     Indication: SUPPLEMENTATION THERAPY
     Dosage: UNK
  13. CALCIUM [Concomitant]
     Indication: SUPPLEMENTATION THERAPY
     Dosage: UNK, DAILY
  14. VITAMIN D3 [Concomitant]
     Indication: SUPPLEMENTATION THERAPY
     Dosage: UNK, DAILY

REACTIONS (3)
  - Drug effect incomplete [Unknown]
  - Pre-existing condition improved [Unknown]
  - Therapeutic response unexpected [Unknown]
